FAERS Safety Report 5129037-4 (Version None)
Quarter: 2006Q4

REPORT INFORMATION
  Report Type: 
  Country: None (occurrence: None)
  Receive Date: 20061011
  Receipt Date: 20060928
  Transmission Date: 20070319
  Serious: Yes (Other)
  Sender: FDA-Public Use
  Company Number: 148056USA

PATIENT
  Age: 49 Year

DRUGS (5)
  1. COPAXONE [Suspect]
     Indication: MULTIPLE SCLEROSIS
     Dosage: 20 MG (20 MG, 1 IN 1 D), SUBCUTANEOUS
     Route: 058
     Dates: start: 20060101
  2. CLONAZEPAM [Concomitant]
  3. LIBRAX [Concomitant]
  4. METAXALONE [Concomitant]
  5. TRAMADOL HCL [Concomitant]

REACTIONS (1)
  - PULMONARY HYPERTENSION [None]
